FAERS Safety Report 4392685-3 (Version None)
Quarter: 2004Q3

REPORT INFORMATION
  Report Type: 
  Country: None (occurrence: None)
  Receive Date: 20040708
  Receipt Date: 20040628
  Transmission Date: 20050211
  Serious: Yes (Hospitalization)
  Sender: FDA-Public Use
  Company Number: PHRM2004FR02233

PATIENT
  Age: 44 Year
  Sex: Female

DRUGS (7)
  1. VOLTAREN [Suspect]
     Indication: NEURALGIA
     Route: 048
     Dates: start: 20040315, end: 20040317
  2. HALDOL [Suspect]
     Route: 048
     Dates: start: 20040206, end: 20040315
  3. HALDOL DECANOATE [Suspect]
     Dosage: 1 DF, ONCE/SINGLE
     Route: 030
     Dates: start: 20040317, end: 20040317
  4. TRIMEPRAZINE TAB [Concomitant]
     Dates: end: 20040315
  5. CLOPIXOL [Suspect]
     Dates: start: 20040317, end: 20040324
  6. RISPERDAL [Concomitant]
     Dates: start: 20040324
  7. LEPTICUR [Concomitant]
     Dosage: UNK, UNK
     Dates: start: 20040324

REACTIONS (4)
  - ALANINE AMINOTRANSFERASE INCREASED [None]
  - CYTOLYTIC HEPATITIS [None]
  - GAMMA-GLUTAMYLTRANSFERASE INCREASED [None]
  - HEPATIC STEATOSIS [None]
